FAERS Safety Report 19011401 (Version 2)
Quarter: 2021Q1

REPORT INFORMATION
  Report Type: Report from Study
  Country: JP (occurrence: JP)
  Receive Date: 20210315
  Receipt Date: 20210324
  Transmission Date: 20210420
  Serious: Yes (Hospitalization)
  Sender: FDA-Public Use
  Company Number: JP-CELGENEUS-JPN-20210302728

PATIENT
  Age: 61 Year
  Sex: Female
  Weight: 74 kg

DRUGS (26)
  1. AZACITIDINE ORAL (CC?486) [Suspect]
     Active Substance: AZACITIDINE
     Indication: ANGIOIMMUNOBLASTIC T-CELL LYMPHOMA
     Dosage: 200 MILLIGRAM
     Route: 048
     Dates: start: 20200818, end: 20200831
  2. MAGNESIUM OXIDE. [Concomitant]
     Active Substance: MAGNESIUM OXIDE
     Indication: PRODUCT USED FOR UNKNOWN INDICATION
     Dosage: UNKNOWN
     Route: 065
  3. ACETAMINOPHEN. [Concomitant]
     Active Substance: ACETAMINOPHEN
     Indication: PROPHYLAXIS
     Dosage: UNKNOWN
     Route: 065
     Dates: start: 20210216, end: 20210216
  4. D?CHLORPHENIRAMINE MALEATE [Concomitant]
     Active Substance: DEXCHLORPHENIRAMINE MALEATE
     Dosage: UNKNOWN
     Route: 065
     Dates: start: 20210301, end: 20210301
  5. HYDROCORTISONE SODIUM [Concomitant]
     Active Substance: HYDROCORTISONE SODIUM SUCCINATE
     Indication: INFUSION RELATED REACTION
     Dosage: UNKNOWN
     Route: 065
     Dates: start: 20210216, end: 20210216
  6. AZACITIDINE ORAL (CC?486) [Suspect]
     Active Substance: AZACITIDINE
     Dosage: 200 MILLIGRAM
     Route: 048
     Dates: start: 20210202, end: 20210215
  7. INFLUENZA HA VACCINE [Concomitant]
     Active Substance: INFLUENZA VIRUS VACCINE
     Indication: PROPHYLAXIS
     Dosage: UNKNOWN
     Route: 065
     Dates: start: 20201105, end: 20201105
  8. SOLDEM 1 [Concomitant]
     Active Substance: DEXTROSE\SODIUM CHLORIDE\SODIUM LACTATE
     Indication: PROPHYLAXIS
     Dosage: UNKNOWN
     Route: 065
     Dates: start: 20200817, end: 20200822
  9. AMLODIPINE BESILATE [Concomitant]
     Active Substance: AMLODIPINE BESYLATE
     Indication: HYPERTENSION
     Dosage: UNKNOWN
     Route: 065
     Dates: start: 20200821
  10. D?CHLORPHENIRAMINE MALEATE [Concomitant]
     Active Substance: DEXCHLORPHENIRAMINE MALEATE
     Indication: PROPHYLAXIS
     Dosage: UNKNOWN
     Route: 065
     Dates: start: 20210216, end: 20210216
  11. TRAVOPROST. [Concomitant]
     Active Substance: TRAVOPROST
     Indication: PRODUCT USED FOR UNKNOWN INDICATION
     Dosage: UNKNOWN
     Route: 065
  12. ATOVAQUONE. [Concomitant]
     Active Substance: ATOVAQUONE
     Indication: PROPHYLAXIS
     Dosage: UNKNOWN
     Route: 065
     Dates: start: 20200821
  13. PREDNISOLONE SODIUM [Concomitant]
     Indication: PROPHYLAXIS
     Dosage: UNKNOWN
     Route: 065
     Dates: start: 20210216, end: 20210216
  14. HYDROCORTISONE SODIUM [Concomitant]
     Active Substance: HYDROCORTISONE SODIUM SUCCINATE
     Indication: PROPHYLAXIS
     Dosage: UNKNOWN
     Route: 065
     Dates: start: 20210301, end: 20210301
  15. FEBUXOSTAT. [Concomitant]
     Active Substance: FEBUXOSTAT
     Indication: PRODUCT USED FOR UNKNOWN INDICATION
     Dosage: UNKNOWN
     Route: 065
  16. TIMOLOL MALEATE. [Concomitant]
     Active Substance: TIMOLOL MALEATE
     Indication: PRODUCT USED FOR UNKNOWN INDICATION
     Dosage: UNKNOWN
     Route: 065
  17. D?CHLORPHENIRAMINE MALEATE [Concomitant]
     Active Substance: DEXCHLORPHENIRAMINE MALEATE
     Dosage: UNKNOWN
     Route: 065
     Dates: start: 20210222, end: 20210222
  18. PREDNISOLONE SODIUM [Concomitant]
     Dosage: UNKNOWN
     Route: 065
     Dates: start: 20210222, end: 20210222
  19. AZACITIDINE ORAL (CC?486) [Suspect]
     Active Substance: AZACITIDINE
     Dosage: UNKNOWN
     Route: 048
  20. CANDESARTAN CILEXETIL. [Concomitant]
     Active Substance: CANDESARTAN CILEXETIL
     Indication: PRODUCT USED FOR UNKNOWN INDICATION
     Dosage: UNKNOWN
     Route: 065
  21. RIPASUDIL HYDROCHLORIDE HYDRATE [Concomitant]
     Indication: PRODUCT USED FOR UNKNOWN INDICATION
     Dosage: UNKNOWN
     Route: 065
  22. ACETAMINOPHEN. [Concomitant]
     Active Substance: ACETAMINOPHEN
     Dosage: UNKNOWN
     Route: 065
     Dates: start: 20210301, end: 20210301
  23. LANSOPRAZOLE. [Concomitant]
     Active Substance: LANSOPRAZOLE
     Indication: PRODUCT USED FOR UNKNOWN INDICATION
     Dosage: UNKNOWN
     Route: 065
  24. DIFLUPREDNATE [Concomitant]
     Active Substance: DIFLUPREDNATE
     Indication: HYPERSENSITIVITY VASCULITIS
     Dosage: UNKNOWN
     Route: 065
     Dates: start: 20200910
  25. ACETAMINOPHEN. [Concomitant]
     Active Substance: ACETAMINOPHEN
     Dosage: UNKNOWN
     Route: 065
     Dates: start: 20210222, end: 20210222
  26. D?CHLORPHENIRAMINE MALEATE [Concomitant]
     Active Substance: DEXCHLORPHENIRAMINE MALEATE
     Indication: INFUSION RELATED REACTION
     Dosage: UNKNOWN
     Route: 065
     Dates: start: 20210216, end: 20210216

REACTIONS (1)
  - Epstein-Barr virus infection reactivation [Not Recovered/Not Resolved]

NARRATIVE: CASE EVENT DATE: 20210118
